FAERS Safety Report 6976588-3 (Version None)
Quarter: 2010Q3

REPORT INFORMATION
  Report Type: 
  Country: None (occurrence: None)
  Receive Date: 20100910
  Receipt Date: 20090428
  Transmission Date: 20110219
  Serious: No
  Sender: FDA-Public Use
  Company Number: US-WYE-H09145509

PATIENT
  Age: 36 Year
  Sex: Female

DRUGS (3)
  1. PRISTIQ [Suspect]
     Indication: STRESS
     Route: 048
     Dates: start: 20090427
  2. PRISTIQ [Suspect]
     Indication: ANXIETY
  3. DEPO-PROVERA [Concomitant]

REACTIONS (6)
  - CRYING [None]
  - DIZZINESS [None]
  - FATIGUE [None]
  - HEADACHE [None]
  - HYPERHIDROSIS [None]
  - INSOMNIA [None]
